FAERS Safety Report 13663275 (Version 2)
Quarter: 2017Q2

REPORT INFORMATION
  Report Type: Report from Study
  Country: US (occurrence: US)
  Receive Date: 20170619
  Receipt Date: 20170629
  Transmission Date: 20170830
  Serious: No
  Sender: FDA-Public Use
  Company Number: US-GILEAD-2017-0278677

PATIENT
  Age: 85 Year
  Sex: Female
  Weight: 80.73 kg

DRUGS (6)
  1. PROAIR HFA [Concomitant]
     Active Substance: ALBUTEROL SULFATE
  2. FUROSEMIDE. [Concomitant]
     Active Substance: FUROSEMIDE
  3. KLOR-CON [Concomitant]
     Active Substance: POTASSIUM CHLORIDE
  4. QVAR [Concomitant]
     Active Substance: BECLOMETHASONE DIPROPIONATE
  5. AMBRISENTAN [Suspect]
     Active Substance: AMBRISENTAN
     Indication: PULMONARY ARTERIAL HYPERTENSION
     Dosage: 10 MG, QD
     Route: 048
     Dates: start: 20110804
  6. WARFARIN [Concomitant]
     Active Substance: WARFARIN

REACTIONS (5)
  - Fall [Unknown]
  - Abdominal pain upper [Unknown]
  - Gastroenteritis viral [Unknown]
  - Nausea [Unknown]
  - Urinary tract infection [Unknown]

NARRATIVE: CASE EVENT DATE: 20170522
